FAERS Safety Report 6274958-2 (Version None)
Quarter: 2009Q3

REPORT INFORMATION
  Report Type: 
  Country: None (occurrence: None)
  Receive Date: 20090721
  Receipt Date: 20090713
  Transmission Date: 20100115
  Serious: Yes (Hospitalization)
  Sender: FDA-Public Use
  Company Number: AU-ASTRAZENECA-2009SE04602

PATIENT
  Age: 7848 Day
  Sex: Female

DRUGS (2)
  1. SEROQUEL [Suspect]
     Route: 048
     Dates: start: 20080330, end: 20080524
  2. EPILIM [Suspect]
     Route: 048
     Dates: start: 20080330, end: 20080524

REACTIONS (1)
  - NEUTROPENIA [None]
